FAERS Safety Report 18637894 (Version 1)
Quarter: 2020Q4

REPORT INFORMATION
  Report Type: Other
  Country: DE (occurrence: DE)
  Receive Date: 20201219
  Receipt Date: 20201219
  Transmission Date: 20210114
  Serious: Yes (Hospitalization, Other)
  Sender: FDA-Public Use
  Company Number: DE-MACLEODS PHARMACEUTICALS US LTD-MAC2020029473

PATIENT

DRUGS (5)
  1. LEVOFLOXACIN 500 MG [Suspect]
     Active Substance: LEVOFLOXACIN
     Indication: PRODUCT USED FOR UNKNOWN INDICATION
     Dosage: 500 MILLIGRAM, QD (1-0-0-0)
     Route: 065
  2. SIMVASTATIN. [Concomitant]
     Active Substance: SIMVASTATIN
     Indication: PRODUCT USED FOR UNKNOWN INDICATION
     Dosage: 20 MILLIGRAM, QD (0-0-1-0)
     Route: 065
  3. FINASTERIDE. [Concomitant]
     Active Substance: FINASTERIDE
     Indication: PRODUCT USED FOR UNKNOWN INDICATION
     Dosage: 5 MILLIGRAM, QD (0-0-1-0)
     Route: 065
  4. ASS 100 [Concomitant]
     Active Substance: ASPIRIN
     Indication: PRODUCT USED FOR UNKNOWN INDICATION
     Dosage: 100 MILLIGRAM, QD (1-0-0-0)
     Route: 065
  5. CANDESARTAN. [Concomitant]
     Active Substance: CANDESARTAN
     Indication: PRODUCT USED FOR UNKNOWN INDICATION
     Dosage: 4 MILLIGRAM, BID  (0.5-0-0.5-0)
     Route: 065

REACTIONS (7)
  - Sinus rhythm [Unknown]
  - Nausea [Unknown]
  - Pulse abnormal [Unknown]
  - Arrhythmia [Unknown]
  - Atrial fibrillation [Unknown]
  - Palpitations [Unknown]
  - Hyperhidrosis [Unknown]
